FAERS Safety Report 20043821 (Version 7)
Quarter: 2022Q1

REPORT INFORMATION
  Report Type: Report from Study
  Country: BR (occurrence: BR)
  Receive Date: 20211108
  Receipt Date: 20220126
  Transmission Date: 20220423
  Serious: Yes (Other)
  Sender: FDA-Public Use
  Company Number: BR-NOVARTISPH-NVSC2021BR195454

PATIENT
  Age: 71 Year
  Sex: Female
  Weight: 67 kg

DRUGS (15)
  1. LUCENTIS [Suspect]
     Active Substance: RANIBIZUMAB
     Indication: Macular degeneration
     Dosage: UNK (STARTED ABOUT 2 YEARS AGO)
     Route: 065
  2. LUCENTIS [Suspect]
     Active Substance: RANIBIZUMAB
     Dosage: 1 DF, QMO (ONE INJECTION QMO BETWEEN SEP 2019 TO OCT 2021)
     Route: 031
  3. LUCENTIS [Suspect]
     Active Substance: RANIBIZUMAB
     Dosage: 1 DF, QMO (BETWEEN SEP 2019 AND 04 OCT 2021)
     Route: 031
  4. CLOPIDOGREL BISULFATE [Suspect]
     Active Substance: CLOPIDOGREL BISULFATE
     Indication: Anticoagulant therapy
     Dosage: 1 DF, QD (STARTED ABOUT 6 MONTHS AGO)
     Route: 048
     Dates: start: 2009
  5. CLOPIDOGREL BISULFATE [Suspect]
     Active Substance: CLOPIDOGREL BISULFATE
     Indication: Myocardial infarction
  6. BROLUCIZUMAB [Suspect]
     Active Substance: BROLUCIZUMAB
     Indication: Neovascular age-related macular degeneration
     Dosage: 1 DF (ONE INJECTION IN BOTH EYES)
     Route: 031
     Dates: start: 20211004
  7. BROLUCIZUMAB [Suspect]
     Active Substance: BROLUCIZUMAB
     Dosage: UNK,ONE INJECTION IN BOTH EYES))
     Route: 065
     Dates: start: 20211116
  8. BROLUCIZUMAB [Suspect]
     Active Substance: BROLUCIZUMAB
     Dosage: UNK (0.6/0.5 MG/ML EVERY 12 WEEKS)
     Route: 031
     Dates: start: 202108
  9. LOSARTAN [Suspect]
     Active Substance: LOSARTAN
     Indication: Myocardial infarction
     Dosage: 1 DF 20 MG (MORNING AND NIGHT)
     Route: 048
     Dates: start: 200909
  10. LOSARTAN [Suspect]
     Active Substance: LOSARTAN
     Indication: Hypertension
  11. ATENOLOL [Suspect]
     Active Substance: ATENOLOL
     Indication: Myocardial infarction
     Dosage: 50 MG, BID
     Route: 048
     Dates: start: 200909
  12. ATENOLOL [Suspect]
     Active Substance: ATENOLOL
     Indication: Hypertension
  13. AMLODIPINE [Suspect]
     Active Substance: AMLODIPINE BESYLATE
     Indication: Myocardial infarction
     Dosage: 1 DF 5 MG
     Route: 048
     Dates: start: 200909
  14. AMLODIPINE [Suspect]
     Active Substance: AMLODIPINE BESYLATE
     Indication: Hypertension
  15. CYLOCORT [Concomitant]
     Indication: Product used for unknown indication
     Dosage: EVERY 8 HOUR
     Route: 065

REACTIONS (22)
  - Blindness unilateral [Recovered/Resolved]
  - Macular oedema [Unknown]
  - Hallucination, visual [Unknown]
  - Haemorrhage [Unknown]
  - Central vision loss [Unknown]
  - Visual impairment [Recovered/Resolved]
  - Eye disorder [Recovered/Resolved]
  - Photophobia [Recovered/Resolved]
  - Lacrimation increased [Recovered/Resolved]
  - Colour blindness [Recovered/Resolved]
  - Blood pressure fluctuation [Unknown]
  - Eye injury [Unknown]
  - Lacrimal disorder [Recovering/Resolving]
  - Apraxia [Unknown]
  - Fear [Unknown]
  - Mydriasis [Unknown]
  - Visual impairment [Recovered/Resolved]
  - Eye pain [Recovered/Resolved]
  - Vision blurred [Recovering/Resolving]
  - Eye pain [Recovered/Resolved]
  - Eyelid contusion [Recovered/Resolved]
  - Eye pruritus [Recovered/Resolved]

NARRATIVE: CASE EVENT DATE: 20211004
